FAERS Safety Report 5237012-4 (Version None)
Quarter: 2007Q1

REPORT INFORMATION
  Report Type: 
  Country: None (occurrence: None)
  Receive Date: 20061208
  Receipt Date: 20050222
  Transmission Date: 20070707
  Serious: Yes (Other)
  Sender: FDA-Public Use
  Company Number: 2005UW02892

PATIENT

DRUGS (3)
  1. CRESTOR [Suspect]
  2. STATIN [Suspect]
  3. GEMFIBROZIL [Suspect]

REACTIONS (3)
  - DRUG INTERACTION [None]
  - LIPIDS DECREASED [None]
  - LIPIDS INCREASED [None]
